FAERS Safety Report 9155219 (Version 6)
Quarter: 2014Q2

REPORT INFORMATION
  Report Type: Spontaneous
  Country: US (occurrence: US)
  Receive Date: 20130311
  Receipt Date: 20140502
  Transmission Date: 20141212
  Serious: Yes (Hospitalization, Other)
  Sender: FDA-Public Use
  Company Number: US-MERCK-1303USA003919

PATIENT
  Sex: Female
  Weight: 58.96 kg

DRUGS (9)
  1. FOSAMAX [Suspect]
     Indication: OSTEOPENIA
     Dosage: 70 MG, QW
     Route: 048
     Dates: start: 2002, end: 200706
  2. FOSAMAX [Suspect]
     Indication: OSTEOPOROSIS
  3. BENICAR [Concomitant]
     Indication: HYPERTENSION
     Dosage: 20/12.5-40 MG, QD
     Dates: start: 2005
  4. DILTIAZEM HYDROCHLORIDE [Concomitant]
     Indication: HYPERTENSION
     Dosage: 180 MG, BID
     Dates: start: 2005, end: 2007
  5. ALLEGRA [Concomitant]
     Indication: HYPERSENSITIVITY
     Dosage: UNK
     Dates: start: 2005, end: 2006
  6. ZYRTEC [Concomitant]
     Indication: HYPERSENSITIVITY
     Dosage: UNK
     Dates: start: 2010, end: 2012
  7. FEXOFENADINE HYDROCHLORIDE [Concomitant]
     Indication: HYPERSENSITIVITY
     Dosage: 180 MG, QD
     Route: 048
  8. TYLENOL [Concomitant]
     Indication: ARTHRITIS
  9. CELEBREX [Concomitant]
     Indication: ARTHRITIS
     Dosage: 100 MG, BID

REACTIONS (70)
  - Femur fracture [Unknown]
  - Intramedullary rod insertion [Recovered/Resolved]
  - Femur fracture [Unknown]
  - Intramedullary rod insertion [Unknown]
  - Pneumonia [Recovered/Resolved]
  - Pneumonia [Unknown]
  - Myocardial infarction [Unknown]
  - Cerebrovascular accident [Unknown]
  - Hyponatraemia [Unknown]
  - Hyponatraemia [Recovered/Resolved]
  - Atrial fibrillation [Unknown]
  - Atrial fibrillation [Recovered/Resolved]
  - Atrial flutter [Recovered/Resolved]
  - Anaemia postoperative [Unknown]
  - Haemorrhage [Unknown]
  - Lung carcinoma cell type unspecified stage IV [Unknown]
  - Metastases to spine [Unknown]
  - Vena cava injury [Unknown]
  - Pneumonia [Unknown]
  - Low turnover osteopathy [Unknown]
  - Hypercholesterolaemia [Unknown]
  - Glaucoma [Recovered/Resolved]
  - Angiopathy [Unknown]
  - Foot operation [Unknown]
  - Ligament injury [Unknown]
  - Migraine [Unknown]
  - Fall [Unknown]
  - Joint injury [Unknown]
  - Bronchitis [Recovering/Resolving]
  - Fatigue [Unknown]
  - Coronary artery disease [Unknown]
  - Tachycardia [Recovered/Resolved]
  - Cardiac murmur [Unknown]
  - Synovial cyst [Unknown]
  - Rib fracture [Unknown]
  - Pulmonary fibrosis [Unknown]
  - Hiatus hernia [Unknown]
  - Lipoma [Unknown]
  - Blood sodium decreased [Unknown]
  - Spinal osteoarthritis [Unknown]
  - Stress [Unknown]
  - Transient ischaemic attack [Unknown]
  - Cataract operation [Unknown]
  - Retinopexy [Unknown]
  - Nail infection [Unknown]
  - Nail operation [Unknown]
  - Rotator cuff syndrome [Not Recovered/Not Resolved]
  - Tendon rupture [Not Recovered/Not Resolved]
  - Atrial flutter [Unknown]
  - Urinary tract infection [Unknown]
  - Anaemia [Unknown]
  - Cancer surgery [Recovered/Resolved]
  - Rotator cuff syndrome [Unknown]
  - Radius fracture [Unknown]
  - Fall [Unknown]
  - Spinal compression fracture [Unknown]
  - Aortic calcification [Unknown]
  - Spondylolysis [Unknown]
  - Diverticulum [Unknown]
  - Bronchitis chronic [Unknown]
  - Ankle operation [Unknown]
  - Bradycardia [Unknown]
  - Cerebral atrophy [Unknown]
  - Dizziness [Unknown]
  - Arthralgia [Unknown]
  - Gastrooesophageal reflux disease [Unknown]
  - Nausea [Unknown]
  - Oedema peripheral [Unknown]
  - Muscle spasms [Unknown]
  - Vomiting [Unknown]
